FAERS Safety Report 7009587-6 (Version None)
Quarter: 2010Q3

REPORT INFORMATION
  Report Type: 
  Country: None (occurrence: None)
  Receive Date: 20100923
  Receipt Date: 20100911
  Transmission Date: 20110219
  Serious: Yes (Other)
  Sender: FDA-Public Use
  Company Number: US-PFIZER INC-2010114870

PATIENT
  Sex: Male
  Weight: 117.91 kg

DRUGS (12)
  1. CHANTIX [Suspect]
     Indication: SMOKING CESSATION THERAPY
     Dosage: 0.5 MG, 1X/DAY
     Route: 048
  2. AMBIEN [Concomitant]
     Indication: SLEEP DISORDER
     Dosage: 10 MG, DAILY
     Route: 048
  3. ATIVAN [Concomitant]
     Indication: ANXIETY
     Dosage: 10 MG, 3X/DAY
     Route: 048
  4. LORTAB [Concomitant]
     Indication: PAIN
     Dosage: 10/500 MG, DAILY
     Route: 048
  5. DILANTIN [Concomitant]
     Indication: CONVULSION
     Dosage: 200 MG, 2X/DAY
     Route: 048
  6. ZESTRIL [Concomitant]
     Indication: CARDIAC DISORDER
     Dosage: 10 MG, DAILY
     Route: 048
  7. GLUCOTROL [Concomitant]
     Indication: DIABETES MELLITUS
     Dosage: 5 MG, DAILY
     Route: 048
  8. COREG [Concomitant]
     Indication: CARDIAC DISORDER
     Dosage: 25 MG, 2X/DAY
     Route: 048
  9. LASIX [Concomitant]
     Indication: FLUID RETENTION
     Dosage: 20 MG, 1X/DAY
     Route: 048
  10. GLUCOPHAGE [Concomitant]
     Indication: DIABETES MELLITUS
     Dosage: 500 MG, 2X/DAY
     Route: 048
  11. LIPITOR [Concomitant]
     Indication: BLOOD CHOLESTEROL ABNORMAL
     Dosage: 40 MG, DAILY
     Route: 048
  12. VITAMIN D [Concomitant]
     Dosage: 2000 IU, DAILY
     Route: 048

REACTIONS (2)
  - RASH [None]
  - SKIN LESION [None]
